FAERS Safety Report 19543501 (Version 1)
Quarter: 2021Q3

REPORT INFORMATION
  Report Type: Spontaneous
  Country: PL (occurrence: PL)
  Receive Date: 20210714
  Receipt Date: 20210714
  Transmission Date: 20211014
  Serious: Yes (Other)
  Sender: FDA-Public Use
  Company Number: PL-TEVA-2021-PL-1932677

PATIENT
  Age: 64 Year
  Sex: Female
  Weight: 88 kg

DRUGS (3)
  1. IRINOTECAN [Suspect]
     Active Substance: IRINOTECAN
     Indication: COLON CANCER
     Dosage: DOSE: 381.6 (UNSPECIFIED UNITS)
     Route: 042
     Dates: start: 20180920, end: 20180925
  2. FLUOROURACIL. [Suspect]
     Active Substance: FLUOROURACIL
     Indication: COLON CANCER
     Dosage: DOSE: BOLUS ? 848 (UNSPECIFIED UNITS), DRIP ? 2544 (UNSPECIFIED UNITS)
     Dates: start: 20180920, end: 20180925
  3. CALCII FOLINAS [Suspect]
     Active Substance: LEUCOVORIN
     Indication: COLON CANCER
     Dosage: DOSE: 424 (UNSPECIFIED UNITS)
     Route: 042
     Dates: start: 20180920, end: 20180925

REACTIONS (1)
  - Neutropenia [Unknown]

NARRATIVE: CASE EVENT DATE: 20181009
